FAERS Safety Report 6305604-7 (Version None)
Quarter: 2009Q3

REPORT INFORMATION
  Report Type: 
  Country: None (occurrence: None)
  Receive Date: 20090806
  Receipt Date: 20090724
  Transmission Date: 20100115
  Serious: Yes (Other)
  Sender: FDA-Public Use
  Company Number: 2009-03005

PATIENT
  Age: 59 Year
  Sex: Male
  Weight: 62 kg

DRUGS (11)
  1. VELCADE [Suspect]
     Indication: MULTIPLE MYELOMA
     Dosage: 2.2 MG, , INTRAVENOUS
     Route: 042
     Dates: start: 20070605, end: 20070817
  2. PYRINAZIN (PARACETAMOL) [Concomitant]
  3. LOXONIN (LOXOPROFEN SODIUM) [Concomitant]
  4. ZOMETA [Concomitant]
  5. LAC B (LACTOBACILLUS BIFIDUS, LYOPHILIZED) [Concomitant]
  6. CLARITIN [Concomitant]
  7. BIOFERMIN R (STREPTOCOCCUS FAECALIS) [Concomitant]
  8. CRAVIT (LEVOFLOXACIN) EYE DROPS [Concomitant]
  9. NIFLAN (PRANOPROFEN) EYE DROPS [Concomitant]
  10. TARIVID OPHTHALMIC (OFLOXACIN) OINTMENT, CREAM [Concomitant]
  11. AMOXICILLIN TRIHYDRATE [Concomitant]

REACTIONS (9)
  - BLOOD ALKALINE PHOSPHATASE INCREASED [None]
  - BLOOD LACTATE DEHYDROGENASE INCREASED [None]
  - DIARRHOEA [None]
  - GRANULOMA [None]
  - NEUTROPHIL COUNT DECREASED [None]
  - PLATELET COUNT DECREASED [None]
  - PYREXIA [None]
  - RASH [None]
  - WHITE BLOOD CELL COUNT DECREASED [None]
